FAERS Safety Report 7997564-8 (Version None)
Quarter: 2011Q4

REPORT INFORMATION
  Report Type: 
  Country: None (occurrence: None)
  Receive Date: 20111212
  Receipt Date: 20111206
  Transmission Date: 20120403
  Serious: Yes (Hospitalization)
  Sender: FDA-Public Use
  Company Number: 2011028445

PATIENT
  Sex: Female
  Weight: 47.6277 kg

DRUGS (28)
  1. HIZENTRA [Suspect]
     Indication: HYPOGLOBULINAEMIA
     Dosage: SUBCUTANEOUS
     Route: 058
     Dates: start: 20110401
  2. HIZENTRA [Suspect]
     Indication: HYPOGLOBULINAEMIA
     Dosage: SUBCUTANEOUS
     Route: 058
     Dates: start: 20110401
  3. CEFTIN [Concomitant]
  4. HEPARIN IV FLUSH (HEPARIN) [Concomitant]
  5. CENTRUM LIQUID (CENTRUM /01522201/) [Concomitant]
  6. CALCIUM CARBONATE [Concomitant]
  7. HIZENTRA [Suspect]
     Indication: HYPOGLOBULINAEMIA
     Dosage: (3 G 3X/WEEK, INFUSED 15 ML MWF; SLOW PUSH OVER 10 TO 15 MINUTES SUBCUTANEOUS)
     Route: 058
     Dates: start: 20110310
  8. SIMETHICONE DROPS (DIMETICONE, ACTIVATED) [Concomitant]
  9. OXYCODONE HCL [Concomitant]
  10. VITAMIN D [Concomitant]
  11. CLARITIN [Concomitant]
  12. VITAMIN K (VITAMIN K NOS) [Concomitant]
  13. ATIVAN [Concomitant]
  14. KEPPRA [Concomitant]
  15. HIZENTRA [Suspect]
     Indication: HYPOGLOBULINAEMIA
     Dosage: SUBCUTANEOUS
     Route: 058
     Dates: start: 20110101
  16. CRANBERRY CAPSULE (VACCINIUM MACROCARPON) [Concomitant]
  17. HEPARIN [Concomitant]
  18. ZOSYN [Concomitant]
  19. MORPHINE SULFATE INJ [Concomitant]
  20. NORMAL SALINE FLUSH (SODIUM CHLORIDE) [Concomitant]
  21. CARNITINE (CARNITINE) [Concomitant]
  22. ACIDOPHILUS LACTOBACILLUS (LACTOBACILLUS ACIDOPHILUS) [Concomitant]
  23. PREDNISONE TAB [Concomitant]
  24. MYSOLINE [Concomitant]
  25. ALBUTEROL [Concomitant]
  26. HIZENTRA [Suspect]
     Indication: HYPOGLOBULINAEMIA
     Dosage: (3 G 3X/WEEK, (15 ML) 10-15 MINUTES ON MWF SUBCUTANEOUS)
     Route: 058
     Dates: start: 20110101
  27. ACETAMINOPHEN [Concomitant]
  28. VIMPAT [Concomitant]

REACTIONS (7)
  - SEPSIS [None]
  - TONSILLITIS BACTERIAL [None]
  - INFECTION [None]
  - PNEUMONIA [None]
  - RESPIRATORY TRACT INFECTION [None]
  - CHRONIC TONSILLITIS [None]
  - ASPIRATION [None]
